FAERS Safety Report 9198665 (Version 2)
Quarter: 2013Q2

REPORT INFORMATION
  Report Type: Spontaneous
  Country: US (occurrence: US)
  Receive Date: 20130329
  Receipt Date: 20130409
  Transmission Date: 20140414
  Serious: Yes (Hospitalization)
  Sender: FDA-Public Use
  Company Number: US-JNJFOC-20130312160

PATIENT
  Age: 85 Year
  Sex: Female
  Weight: 109 kg

DRUGS (13)
  1. XARELTO [Suspect]
     Indication: CEREBROVASCULAR ACCIDENT PROPHYLAXIS
     Route: 048
  2. XARELTO [Suspect]
     Indication: ATRIAL FIBRILLATION
     Route: 048
  3. MELOXICAM [Suspect]
     Indication: PAIN
     Route: 048
  4. ASPIRIN [Suspect]
     Indication: PRODUCT USED FOR UNKNOWN INDICATION
     Route: 048
  5. HYDRALAZINE [Concomitant]
     Route: 048
  6. NORCO [Concomitant]
     Indication: PAIN
     Dosage: 325 MG - 5 MG PRN (AS NECESSARY)
     Route: 048
  7. ATORVASTATIN [Concomitant]
     Route: 048
  8. SENNA [Concomitant]
     Route: 048
  9. FUROSEMIDE [Concomitant]
     Route: 048
  10. MULTIVITAMIN/MINERALS [Concomitant]
     Route: 048
  11. CHOLECALCIFEROL [Concomitant]
     Dosage: 1000 UNITS
     Route: 048
  12. CALTRATE WITH VITAMIN D [Concomitant]
     Route: 048
  13. METAMUCIL [Concomitant]
     Route: 048

REACTIONS (6)
  - Syncope [Unknown]
  - Gastrointestinal haemorrhage [Recovering/Resolving]
  - Gastric ulcer [Unknown]
  - Renal impairment [Unknown]
  - Haemoglobin decreased [Unknown]
  - Haematochezia [Unknown]
